FAERS Safety Report 10905211 (Version 1)
Quarter: 2015Q1

REPORT INFORMATION
  Report Type: Spontaneous
  Country: US (occurrence: None)
  Receive Date: 20150309
  Receipt Date: 20150309
  Transmission Date: 20150721
  Serious: Yes (Disabling)
  Sender: FDA-Public Use
  Company Number: None

PATIENT
  Age: 55 Year
  Sex: Female

DRUGS (1)
  1. LEVOCETIRIZINE [Suspect]
     Active Substance: LEVOCETIRIZINE
     Indication: HYPERSENSITIVITY
     Dosage: 1
     Route: 048
     Dates: start: 20141217, end: 20150222

REACTIONS (2)
  - Feeling abnormal [None]
  - Muscle spasms [None]

NARRATIVE: CASE EVENT DATE: 20150222
